FAERS Safety Report 24141505 (Version 1)
Quarter: 2024Q3

REPORT INFORMATION
  Report Type: Spontaneous
  Country: JP (occurrence: JP)
  Receive Date: 20240726
  Receipt Date: 20240726
  Transmission Date: 20241017
  Serious: Yes (Other)
  Sender: RANBAXY
  Company Number: JP-SUN PHARMACEUTICAL INDUSTRIES LTD-2024RR-458976

PATIENT
  Age: 67 Year
  Sex: Female

DRUGS (9)
  1. ARIPIPRAZOLE [Suspect]
     Active Substance: ARIPIPRAZOLE
     Indication: Schizophrenia
     Dosage: 24 MILLIGRAM, UNK
     Route: 065
  2. OLANZAPINE [Suspect]
     Active Substance: OLANZAPINE
     Indication: Schizophrenia
     Dosage: 10 MILLIGRAM, UNK
     Route: 065
  3. RISPERIDONE [Suspect]
     Active Substance: RISPERIDONE
     Indication: Schizophrenia
     Dosage: 9 MILLIGRAM, UNK
     Route: 065
  4. HALOPERIDOL [Suspect]
     Active Substance: HALOPERIDOL
     Indication: Schizophrenia
     Dosage: 24 MILLIGRAM, UNK
     Route: 065
  5. HALOPERIDOL [Suspect]
     Active Substance: HALOPERIDOL
     Dosage: 10 MILLIGRAM, UNK
     Route: 065
  6. HALOPERIDOL [Suspect]
     Active Substance: HALOPERIDOL
     Dosage: 20 MILLIGRAM, UNK
     Route: 065
  7. CHLORPROMAZINE [Suspect]
     Active Substance: CHLORPROMAZINE
     Indication: Schizophrenia
     Dosage: 200 MILLIGRAM, UNK
     Route: 065
  8. PEROSPIRONE [Suspect]
     Active Substance: PEROSPIRONE
     Indication: Schizophrenia
     Dosage: 48 MILLIGRAM, UNK
     Route: 065
  9. BROMPERIDOL [Suspect]
     Active Substance: BROMPERIDOL
     Indication: Schizophrenia
     Dosage: 9 MILLIGRAM, UNK
     Route: 065

REACTIONS (2)
  - Drug ineffective [Unknown]
  - Hostility [Unknown]
